FAERS Safety Report 16259980 (Version 1)
Quarter: 2019Q2

REPORT INFORMATION
  Report Type: Report from Study
  Country: IT (occurrence: IT)
  Receive Date: 20190501
  Receipt Date: 20190501
  Transmission Date: 20190711
  Serious: Yes (Hospitalization, Other)
  Sender: FDA-Public Use
  Company Number: IT-MYLANLABS-2019M1040847

PATIENT
  Age: 55 Year
  Sex: Female

DRUGS (2)
  1. NORVASC [Concomitant]
     Active Substance: AMLODIPINE BESYLATE
     Dosage: UNK
  2. BRUFEN [Suspect]
     Active Substance: IBUPROFEN
     Indication: SCIATICA
     Dosage: 2 DOSAGE FORM, QD
     Route: 048
     Dates: start: 20180622, end: 20181019

REACTIONS (6)
  - Intentional product misuse [Unknown]
  - Drug abuse [Unknown]
  - Melaena [Recovering/Resolving]
  - Gastric ulcer [Recovering/Resolving]
  - Gastric disorder [Recovering/Resolving]
  - Microcytic anaemia [Recovering/Resolving]

NARRATIVE: CASE EVENT DATE: 20181019
